FAERS Safety Report 8429215-2 (Version None)
Quarter: 2012Q2

REPORT INFORMATION
  Report Type: 
  Country: None (occurrence: None)
  Receive Date: 20120612
  Receipt Date: 20120605
  Transmission Date: 20120825
  Serious: Yes (Hospitalization, Other)
  Sender: FDA-Public Use
  Company Number: PHHY2012AU024060

PATIENT
  Sex: Male

DRUGS (15)
  1. VALPRO [Concomitant]
     Dosage: 500MG (1 TAB AS DIRECTED)
  2. VALPRO [Concomitant]
     Dosage: 200 MG (1 DF AS DIRECTED)
  3. PAROXETINE [Concomitant]
     Dosage: 1 DF, QD ( 1 TAB ONCE PER DAY)
  4. PANTOPRAZOLE [Concomitant]
     Dosage: 1 DF, QD
  5. CLOZARIL [Suspect]
     Dosage: 300 MG
     Dates: start: 19931019, end: 20110101
  6. DITROPAN [Concomitant]
     Dosage: 1 DF, QD (AT NIGHT)
  7. ENDEP [Concomitant]
     Dosage: 1 DF, QD (1 TAB AT NIGHT AS REQUIRED)
  8. QUETIAPINE FUMARATE [Concomitant]
     Dosage: 1 DF, QD (1 MODIFIED TABLET ONCE PER DAY)
  9. PAROXETINE [Concomitant]
     Dosage: 800 MG (SEROQUEL 400MG 2 TABS ONCE PER DAY)
  10. SEROQUEL XR [Concomitant]
     Dosage: 2 DF, QD (2 MODIFIED RELEASED TABLET ,ONCE PER DAY)
  11. BIPERIDEN HYDROCHLORIDE TAB [Concomitant]
     Dosage: 2 DF AT NIGHT
  12. XALATAN [Concomitant]
     Dosage: 2.5ML 1 EYE DROP AT NIGHT EACH EYE
  13. MOVIPREP [Concomitant]
     Dosage: 1 POWDER (SACHET) ONCE PER DAY AS REQUIRED
  14. PERINDOPRIL ERBUMINE [Concomitant]
     Dosage: 1 DF DAILY
  15. PANADENE [Concomitant]
     Dosage: 1-2 TABS THREE TIMES DAILY

REACTIONS (10)
  - NEUTROPENIA [None]
  - GAMMA-GLUTAMYLTRANSFERASE INCREASED [None]
  - DYSKINESIA [None]
  - LYMPHOMA [None]
  - BLOOD CHOLESTEROL INCREASED [None]
  - WHITE BLOOD CELL COUNT DECREASED [None]
  - ABNORMAL BEHAVIOUR [None]
  - NEUTROPHIL COUNT DECREASED [None]
  - TARDIVE DYSKINESIA [None]
  - PNEUMONIA [None]
